FAERS Safety Report 8875797 (Version 1)
Quarter: 2012Q4

REPORT INFORMATION
  Report Type: 
  Country: US (occurrence: US)
  Receive Date: 20121023
  Receipt Date: 20121023
  Transmission Date: 20130627
  Serious: No
  Sender: FDA-Public Use
  Company Number: US-009507513-1210USA004424

PATIENT

DRUGS (1)
  1. SAPHRIS [Suspect]

REACTIONS (1)
  - Tremor [Recovered/Resolved]
